FAERS Safety Report 6239668-6 (Version None)
Quarter: 2009Q2

REPORT INFORMATION
  Report Type: 
  Country: None (occurrence: None)
  Receive Date: 20090619
  Receipt Date: 20090605
  Transmission Date: 20091009
  Serious: Yes (Life-Threatening, Hospitalization)
  Sender: FDA-Public Use
  Company Number: 1000006770

PATIENT
  Age: 1 Day
  Sex: Male
  Weight: 1.3 kg

DRUGS (5)
  1. MILNACIPRAN HYDROCHLORIDE) [Suspect]
     Dosage: TRANSPLACENTAL
     Route: 064
  2. MEILAX [Suspect]
     Dosage: TRANSPLACENTAL
     Route: 064
  3. HALCION [Suspect]
     Indication: MATERNAL DRUGS AFFECTING FOETUS
  4. CERCINE [Suspect]
     Indication: MATERNAL DRUGS AFFECTING FOETUS
  5. DEZOLAM [Suspect]
     Indication: MATERNAL DRUGS AFFECTING FOETUS

REACTIONS (9)
  - ALANINE AMINOTRANSFERASE INCREASED [None]
  - AMNIOTIC FLUID VOLUME DECREASED [None]
  - ASPARTATE AMINOTRANSFERASE INCREASED [None]
  - BLOOD LACTATE DEHYDROGENASE INCREASED [None]
  - CAESAREAN SECTION [None]
  - HAEMORRHAGE SUBCUTANEOUS [None]
  - PANCYTOPENIA [None]
  - PREMATURE BABY [None]
  - SMALL FOR DATES BABY [None]
